FAERS Safety Report 12084290 (Version 1)
Quarter: 2016Q1

REPORT INFORMATION
  Report Type: Spontaneous
  Country: US (occurrence: None)
  Receive Date: 20160216
  Receipt Date: 20160216
  Transmission Date: 20160526
  Serious: Yes (Other)
  Sender: FDA-Public Use
  Company Number: None

PATIENT
  Age: 38 Year
  Sex: Female
  Weight: 52.16 kg

DRUGS (12)
  1. NUVIGIL [Concomitant]
     Active Substance: ARMODAFINIL
  2. DAILY VITAMIN WOMEN^S FORMULA [Concomitant]
  3. BUPROPION SR 150 MG SANDOZ [Suspect]
     Active Substance: BUPROPION
     Indication: FATIGUE
     Route: 048
     Dates: start: 20150706, end: 20150730
  4. TYSABRI [Concomitant]
     Active Substance: NATALIZUMAB
  5. BACLOFEN. [Concomitant]
     Active Substance: BACLOFEN
  6. ALLEGRA [Concomitant]
     Active Substance: FEXOFENADINE HYDROCHLORIDE
  7. VITAMIN D3 [Concomitant]
     Active Substance: CHOLECALCIFEROL
  8. NITROFURANTOIN. [Concomitant]
     Active Substance: NITROFURANTOIN
  9. VITAMIN B12 [Concomitant]
     Active Substance: CYANOCOBALAMIN
  10. SUDAFED [Concomitant]
     Active Substance: PSEUDOEPHEDRINE HYDROCHLORIDE
  11. BUPROPION SR 150 MG SANDOZ [Suspect]
     Active Substance: BUPROPION
     Indication: DEPRESSION
     Route: 048
     Dates: start: 20150706, end: 20150730
  12. CIPROFLOXACIN. [Concomitant]
     Active Substance: CIPROFLOXACIN

REACTIONS (6)
  - Activities of daily living impaired [None]
  - Lethargy [None]
  - Product substitution issue [None]
  - Feeling of despair [None]
  - Stress [None]
  - Drug ineffective [None]

NARRATIVE: CASE EVENT DATE: 20150720
